FAERS Safety Report 9091072 (Version 2)
Quarter: 2013Q1

REPORT INFORMATION
  Report Type: Spontaneous
  Country: AU (occurrence: AU)
  Receive Date: 20130211
  Receipt Date: 20130211
  Transmission Date: 20140127
  Serious: Yes (Other)
  Sender: FDA-Public Use
  Company Number: PHHY2011AU64331

PATIENT
  Age: 50 Year
  Sex: Female

DRUGS (1)
  1. EXFORGE HCT [Suspect]
     Route: 048

REACTIONS (2)
  - Renal impairment [Unknown]
  - Arthralgia [Recovered/Resolved]
